FAERS Safety Report 8608083-X (Version None)
Quarter: 2012Q3

REPORT INFORMATION
  Report Type: 
  Country: None (occurrence: None)
  Receive Date: 20120821
  Receipt Date: 20120815
  Transmission Date: 20120928
  Serious: Yes (Other)
  Sender: FDA-Public Use
  Company Number: PHHY2012AR071195

PATIENT
  Sex: Female

DRUGS (2)
  1. EXFORGE [Suspect]
     Indication: HYPERTENSION
     Dosage: 1 TABLET AND A HALF (160/5 MG) DAILY
     Dates: start: 20120630
  2. EXFORGE [Suspect]
     Dosage: A QUARTER OF A PILL (160/5 MG)

REACTIONS (5)
  - PYREXIA [None]
  - WRONG TECHNIQUE IN DRUG USAGE PROCESS [None]
  - PNEUMONIA [None]
  - COUGH [None]
  - HYPERTENSION [None]
